FAERS Safety Report 8809422 (Version 2)
Quarter: 2014Q3

REPORT INFORMATION
  Report Type: Report from Study
  Country: US (occurrence: US)
  Receive Date: 20120926
  Receipt Date: 20140829
  Transmission Date: 20150326
  Serious: Yes (Other)
  Sender: FDA-Public Use
  Company Number: US-ROCHE-1127011

PATIENT
  Sex: Female
  Weight: 72 kg

DRUGS (5)
  1. AVASTIN [Suspect]
     Active Substance: BEVACIZUMAB
     Indication: COLON CANCER
  2. 5-FU [Concomitant]
     Active Substance: FLUOROURACIL
  3. AVASTIN [Suspect]
     Active Substance: BEVACIZUMAB
     Indication: COLON CANCER
     Route: 065
  4. IRINOTECAN [Concomitant]
     Active Substance: IRINOTECAN
  5. LEUCOVORIN [Concomitant]
     Active Substance: LEUCOVORIN

REACTIONS (4)
  - Neoplasm [Unknown]
  - Metastasis [Unknown]
  - Pain [Unknown]
  - Carcinoembryonic antigen increased [Unknown]
